FAERS Safety Report 5916555-1 (Version None)
Quarter: 2008Q4

REPORT INFORMATION
  Report Type: 
  Country: None (occurrence: None)
  Receive Date: 20081013
  Receipt Date: 20081006
  Transmission Date: 20090506
  Serious: Yes (Other)
  Sender: FDA-Public Use
  Company Number: B0541187A

PATIENT
  Sex: Female

DRUGS (1)
  1. IMIGRAN [Suspect]
     Indication: MIGRAINE
     Dosage: 50MG PER DAY
     Route: 065

REACTIONS (2)
  - DRUG EXPOSURE DURING PREGNANCY [None]
  - STILLBIRTH [None]
